FAERS Safety Report 21685376 (Version 1)
Quarter: 2022Q4

REPORT INFORMATION
  Report Type: Spontaneous
  Country: US (occurrence: US)
  Receive Date: 20221206
  Receipt Date: 20221206
  Transmission Date: 20230112
  Serious: No
  Sender: FDA-Public Use
  Company Number: US-CHIESI-2022CHF05316

PATIENT
  Age: 20 Year
  Sex: Female
  Weight: 83 kg

DRUGS (4)
  1. FERRIPROX [Suspect]
     Active Substance: DEFERIPRONE
     Indication: Thalassaemia beta
     Dosage: 2000 MILLIGRAM, BID
     Route: 048
     Dates: start: 20201015, end: 2022
  2. FERRIPROX [Suspect]
     Active Substance: DEFERIPRONE
     Indication: Iron metabolism disorder
     Dosage: UNK
     Route: 048
     Dates: start: 20191206
  3. FERRIPROX [Suspect]
     Active Substance: DEFERIPRONE
     Indication: Hereditary haemochromatosis
  4. JUNEL [Concomitant]
     Active Substance: ETHINYL ESTRADIOL\NORETHINDRONE ACETATE
     Indication: Product used for unknown indication
     Dosage: UNK

REACTIONS (2)
  - Upper respiratory tract infection [Unknown]
  - Off label use [Recovered/Resolved]

NARRATIVE: CASE EVENT DATE: 20201015
